FAERS Safety Report 15109692 (Version 1)
Quarter: 2018Q3

REPORT INFORMATION
  Report Type: Spontaneous
  Country: BR (occurrence: BR)
  Receive Date: 20180705
  Receipt Date: 20180705
  Transmission Date: 20181010
  Serious: Yes (Other)
  Sender: FDA-Public Use
  Company Number: PHHY2018BR033540

PATIENT
  Age: 2 Year
  Sex: Female

DRUGS (3)
  1. TACROLIMUS. [Concomitant]
     Active Substance: TACROLIMUS
     Indication: PRODUCT USED FOR UNKNOWN INDICATION
     Dosage: 1500 MG, BID (1 G IN MORNING ANT 500 MG AT NIGHT)
     Route: 065
     Dates: end: 20180521
  2. MYCOPHENOLATE SODIUM [Concomitant]
     Active Substance: MYCOPHENOLATE SODIUM
     Indication: PRODUCT USED FOR UNKNOWN INDICATION
     Route: 065
  3. MYFORTIC [Suspect]
     Active Substance: MYCOPHENOLATE SODIUM
     Indication: LIVER TRANSPLANT
     Dosage: 180 MG, BID (10 AM AND 10 PM)
     Route: 065
     Dates: end: 20180521

REACTIONS (7)
  - Epstein-Barr virus test positive [Unknown]
  - Burkitt^s lymphoma [Unknown]
  - Constipation [Unknown]
  - Abdominal mass [Unknown]
  - Lymphocyte morphology abnormal [Unknown]
  - Lymphoproliferative disorder [Unknown]
  - Abdominal pain [Unknown]

NARRATIVE: CASE EVENT DATE: 20180513
